FAERS Safety Report 24183065 (Version 1)
Quarter: 2024Q3

REPORT INFORMATION
  Report Type: Spontaneous
  Country: US (occurrence: None)
  Receive Date: 20240806
  Receipt Date: 20240806
  Transmission Date: 20241017
  Serious: No
  Sender: Public
  Company Number: None

PATIENT

DRUGS (1)
  1. OZEMPIC [Suspect]
     Active Substance: SEMAGLUTIDE

REACTIONS (4)
  - Product selection error [None]
  - Incorrect dose administered [None]
  - Incorrect dose administered [None]
  - Drug monitoring procedure incorrectly performed [None]
